FAERS Safety Report 12858116 (Version 1)
Quarter: 2016Q4

REPORT INFORMATION
  Report Type: Spontaneous
  Country: US (occurrence: US)
  Receive Date: 20161018
  Receipt Date: 20161018
  Transmission Date: 20170207
  Serious: No
  Sender: FDA-Public Use
  Company Number: US-SA-2016SA080458

PATIENT
  Sex: Male

DRUGS (1)
  1. LEMTRADA [Suspect]
     Active Substance: ALEMTUZUMAB
     Route: 041

REACTIONS (9)
  - Infusion related reaction [Unknown]
  - Ill-defined disorder [Unknown]
  - Abdominal pain upper [Unknown]
  - Asthenia [Unknown]
  - Dysgeusia [Unknown]
  - Dizziness [Unknown]
  - Feeling abnormal [Unknown]
  - Diarrhoea [Unknown]
  - Fatigue [Unknown]
